FAERS Safety Report 9249568 (Version 1)
Quarter: 2013Q2

REPORT INFORMATION
  Report Type: Spontaneous
  Country: US (occurrence: US)
  Receive Date: 20130423
  Receipt Date: 20130423
  Transmission Date: 20140414
  Serious: No
  Sender: FDA-Public Use
  Company Number: US-BRISTOL-MYERS SQUIBB COMPANY-17458001

PATIENT
  Age: 46 Year
  Sex: Male

DRUGS (1)
  1. YERVOY [Suspect]
     Indication: METASTATIC MALIGNANT MELANOMA
     Dosage: 2 DOSES
     Route: 042

REACTIONS (2)
  - Vision blurred [Unknown]
  - Ocular hyperaemia [Not Recovered/Not Resolved]
